FAERS Safety Report 8947653 (Version 1)
Quarter: 2012Q4

REPORT INFORMATION
  Report Type: 
  Country: FR (occurrence: FR)
  Receive Date: 20121204
  Receipt Date: 20121204
  Transmission Date: 20130627
  Serious: Yes (Hospitalization)
  Sender: FDA-Public Use
  Company Number: FR-ABBOTT-12P-056-1014338-00

PATIENT
  Sex: Male

DRUGS (4)
  1. HUMIRA [Suspect]
     Indication: ANKYLOSING SPONDYLITIS
     Route: 058
     Dates: start: 20120527, end: 20120708
  2. HUMIRA [Suspect]
     Indication: LEUKOCYTE ANTIGEN B-27 POSITIVE
  3. BREXIN (PIROXICAM B-CYCLODEXTRINE) [Concomitant]
     Indication: ANKYLOSING SPONDYLITIS
  4. BREXIN (PIROXICAM B-CYCLODEXTRINE) [Concomitant]
     Indication: LEUKOCYTE ANTIGEN B-27 POSITIVE

REACTIONS (1)
  - Vascular purpura [Recovered/Resolved]
